FAERS Safety Report 10510982 (Version 1)
Quarter: 2014Q4

REPORT INFORMATION
  Report Type: Spontaneous
  Country: GB (occurrence: GB)
  Receive Date: 20141010
  Receipt Date: 20141010
  Transmission Date: 20150528
  Serious: Yes (Other)
  Sender: FDA-Public Use
  Company Number: GB-PFIZER INC-2014273275

PATIENT
  Age: 4 Year
  Sex: Male

DRUGS (1)
  1. BENEFIX [Suspect]
     Active Substance: COAGULATION FACTOR IX RECOMBINANT HUMAN\ISOPROPYL ALCOHOL
     Indication: HAEMOPHILIA
     Dosage: UNK

REACTIONS (5)
  - Pyrexia [Unknown]
  - Pharyngitis [Unknown]
  - Disturbance in social behaviour [Unknown]
  - Infection [Unknown]
  - Mouth haemorrhage [Unknown]
